FAERS Safety Report 12328506 (Version 1)
Quarter: 2016Q2

REPORT INFORMATION
  Report Type: Spontaneous
  Country: US (occurrence: US)
  Receive Date: 20160503
  Receipt Date: 20160503
  Transmission Date: 20160815
  Serious: No
  Sender: FDA-Public Use
  Company Number: US-BEH-2015048674

PATIENT
  Age: 51 Year
  Sex: Female
  Weight: 81 kg

DRUGS (22)
  1. NITROFURANTOIN. [Concomitant]
     Active Substance: NITROFURANTOIN
  2. LIDOCAINE PRILOCAINE [Concomitant]
  3. EPIPEN [Concomitant]
     Active Substance: EPINEPHRINE
  4. EFFEXOR [Concomitant]
     Active Substance: VENLAFAXINE HYDROCHLORIDE
  5. SIMVASTATIN. [Concomitant]
     Active Substance: SIMVASTATIN
  6. PREDNISONE. [Concomitant]
     Active Substance: PREDNISONE
  7. VERAPAMIL [Concomitant]
     Active Substance: VERAPAMIL HYDROCHLORIDE
  8. COREG [Concomitant]
     Active Substance: CARVEDILOL
  9. LEVOTHYROXINE. [Concomitant]
     Active Substance: LEVOTHYROXINE
  10. DIPHENHYDRAMINE. [Concomitant]
     Active Substance: DIPHENHYDRAMINE
  11. NASONEX [Concomitant]
     Active Substance: MOMETASONE FUROATE
  12. CALCIUM VITAMIN D [Concomitant]
     Active Substance: CALCIUM\VITAMIN D
  13. SINGULAIR [Concomitant]
     Active Substance: MONTELUKAST SODIUM
  14. ASTELIN [Concomitant]
     Active Substance: AZELASTINE HYDROCHLORIDE
  15. HIZENTRA [Suspect]
     Active Substance: HUMAN IMMUNOGLOBULIN G
     Indication: IMMUNODEFICIENCY COMMON VARIABLE
     Dosage: 10 GM 5 ML VIAL; 13 GM WEEKLY
     Route: 058
     Dates: start: 20141110, end: 20141110
  16. ACETAMINOPHEN. [Concomitant]
     Active Substance: ACETAMINOPHEN
  17. XOPENEX [Concomitant]
     Active Substance: LEVALBUTEROL HYDROCHLORIDE
  18. VAGISIL ANTI ITCH ORIGINAL STRENGTH [Concomitant]
     Active Substance: BENZOCAINE\RESORCINOL
  19. QVAR [Concomitant]
     Active Substance: BECLOMETHASONE DIPROPIONATE
  20. MULTIVITAMIN [Concomitant]
     Active Substance: VITAMINS
  21. HIZENTRA [Suspect]
     Active Substance: HUMAN IMMUNOGLOBULIN G
     Dosage: 4 GM 20 ML VIAL; 13 GM WEEKLY
     Route: 058
     Dates: start: 20141110, end: 20141110
  22. PEPCID [Concomitant]
     Active Substance: FAMOTIDINE

REACTIONS (3)
  - Infusion site erythema [Recovered/Resolved]
  - Infusion site swelling [Recovered/Resolved]
  - Infusion site pruritus [Unknown]

NARRATIVE: CASE EVENT DATE: 20141110
